FAERS Safety Report 8288357-5 (Version None)
Quarter: 2012Q2

REPORT INFORMATION
  Report Type: 
  Country: None (occurrence: None)
  Receive Date: 20120416
  Receipt Date: 20120412
  Transmission Date: 20120825
  Serious: Yes (Other)
  Sender: FDA-Public Use
  Company Number: US-PFIZER INC-2012091796

PATIENT
  Sex: Female
  Weight: 136 kg

DRUGS (6)
  1. LIPITOR [Suspect]
     Indication: VASCULAR GRAFT
     Dosage: UNK, DAILY
     Dates: start: 20080101
  2. LIPITOR [Suspect]
     Dosage: UNK
  3. SYNTHROID [Concomitant]
     Dosage: UNK
  4. NORVASC [Concomitant]
     Dosage: UNK
  5. NOVOLOG [Concomitant]
     Dosage: UNK
  6. LISINOPRIL [Concomitant]
     Dosage: UNK

REACTIONS (2)
  - BREAST CANCER [None]
  - AMNESIA [None]
